FAERS Safety Report 6395686-9 (Version None)
Quarter: 2009Q4

REPORT INFORMATION
  Report Type: 
  Country: None (occurrence: None)
  Receive Date: 20091009
  Receipt Date: 20091005
  Transmission Date: 20100525
  Serious: Yes (Hospitalization)
  Sender: FDA-Public Use
  Company Number: JP-WYE-H10707209

PATIENT
  Sex: Male
  Weight: 58 kg

DRUGS (8)
  1. ZOSYN [Suspect]
     Indication: PNEUMONIA
     Route: 041
     Dates: start: 20090428, end: 20090516
  2. ISCOTIN [Concomitant]
     Dosage: 300 MG DAILY
     Route: 048
     Dates: start: 20080917, end: 20090505
  3. GLUCONATE SODIUM/MAGNESIUM CHLORIDE ANHYDROUS/POTASSIUM CHLORIDE/SODIU [Concomitant]
     Dosage: 500 ML DAILY
     Route: 041
     Dates: start: 20090428
  4. GASTER [Concomitant]
     Dosage: 20 MG DAILY
     Route: 041
  5. VITAMEDIN [Concomitant]
     Dosage: 1 VIAL DAILY
     Route: 041
  6. SOLITA-T3 [Concomitant]
     Dosage: 500 ML DAILY
     Route: 041
     Dates: start: 20090428
  7. INTRAFAT [Suspect]
     Indication: PROPHYLAXIS
     Dosage: 200 ML DAILY
     Route: 041
     Dates: start: 20090428, end: 20090504
  8. RIFAMPICIN [Concomitant]
     Dosage: 450 MG DAILY
     Route: 048
     Dates: start: 20080917, end: 20090505

REACTIONS (2)
  - CONDITION AGGRAVATED [None]
  - HEPATIC FUNCTION ABNORMAL [None]
